FAERS Safety Report 6332367-1 (Version None)
Quarter: 2009Q3

REPORT INFORMATION
  Report Type: 
  Country: None (occurrence: None)
  Receive Date: 20090827
  Receipt Date: 20090827
  Transmission Date: 20100115
  Serious: Yes (Other)
  Sender: FDA-Public Use
  Company Number: None

PATIENT
  Age: 61 Year
  Sex: Female
  Weight: 69.4003 kg

DRUGS (2)
  1. BACTRIM [Suspect]
     Indication: LABYRINTHITIS
     Dosage: 1 EVERY 12 HRS 10 DAYS PO
     Route: 048
     Dates: start: 20090731, end: 20090809
  2. BACTRIM [Suspect]
     Indication: STAPHYLOCOCCAL INFECTION
     Dosage: 1 EVERY 12 HRS 10 DAYS PO
     Route: 048
     Dates: start: 20090731, end: 20090809

REACTIONS (5)
  - CHROMATURIA [None]
  - CONVULSION [None]
  - EAR HAEMORRHAGE [None]
  - MUSCULOSKELETAL STIFFNESS [None]
  - PAIN [None]
